FAERS Safety Report 21376355 (Version 1)
Quarter: 2022Q3

REPORT INFORMATION
  Report Type: Spontaneous
  Country: US (occurrence: US)
  Receive Date: 20220926
  Receipt Date: 20220926
  Transmission Date: 20221027
  Serious: No
  Sender: FDA-Public Use
  Company Number: US-BEH-2022149782

PATIENT
  Sex: Male

DRUGS (2)
  1. HIZENTRA [Suspect]
     Active Substance: HUMAN IMMUNOGLOBULIN G
     Indication: Velo-cardio-facial syndrome
     Dosage: 2 GRAM, QOW
     Route: 058
     Dates: start: 202203
  2. HIZENTRA [Suspect]
     Active Substance: HUMAN IMMUNOGLOBULIN G
     Dosage: 1 GRAM, QOW
     Route: 058
     Dates: start: 202203

REACTIONS (6)
  - Urine output decreased [Unknown]
  - Decreased appetite [Unknown]
  - Nasopharyngitis [Unknown]
  - Nasal congestion [Unknown]
  - No adverse event [Unknown]
  - Off label use [Unknown]
